FAERS Safety Report 5235653-1 (Version None)
Quarter: 2007Q1

REPORT INFORMATION
  Report Type: 
  Country: None (occurrence: None)
  Receive Date: 20070212
  Receipt Date: 20070206
  Transmission Date: 20070707
  Serious: Yes (Other)
  Sender: FDA-Public Use
  Company Number: GR-EOF-61070

PATIENT
  Age: 28 Year
  Sex: Female
  Weight: 57 kg

DRUGS (3)
  1. AUGMENTIN '125' [Suspect]
     Indication: FURUNCLE
     Dosage: 625MG THREE TIMES PER DAY
     Route: 048
     Dates: start: 20061107, end: 20061114
  2. MESULID [Suspect]
     Indication: FURUNCLE
     Dosage: 100MG PER DAY
     Route: 048
     Dates: start: 20061107, end: 20061114
  3. SERRAPEPTASE [Suspect]
     Indication: FURUNCLE
     Dosage: 5000MG THREE TIMES PER DAY
     Route: 048
     Dates: start: 20061110, end: 20061115

REACTIONS (1)
  - RASH SCARLATINIFORM [None]
